FAERS Safety Report 5115881-6 (Version None)
Quarter: 2006Q3

REPORT INFORMATION
  Report Type: 
  Country: None (occurrence: None)
  Receive Date: 20060927
  Receipt Date: 20060908
  Transmission Date: 20061208
  Serious: Yes (Hospitalization, Other)
  Sender: FDA-Public Use
  Company Number: PHEH2006US11534

PATIENT
  Age: 62 Year
  Sex: Female

DRUGS (15)
  1. ZOMETA [Suspect]
     Indication: METASTASES TO BONE
     Dosage: 4 MG MONTHLY
     Dates: start: 20050511, end: 20060524
  2. AMARYL [Concomitant]
     Indication: DIABETES MELLITUS
  3. NEURONTIN [Concomitant]
     Indication: NEUROPATHY
     Dosage: UNK, UNK
     Dates: start: 20060101
  4. ARAVA [Concomitant]
  5. PREDNISONE [Concomitant]
     Indication: RHEUMATOID ARTHRITIS
     Dosage: VARIOUS DOSES OFF AND ON
  6. IMIPRAMINE [Concomitant]
  7. FOSAMAX [Concomitant]
  8. TAMOXIFEN CITRATE [Concomitant]
  9. DIOVAN [Concomitant]
     Dates: end: 20060801
  10. CATAPRES [Concomitant]
     Dates: end: 20060801
  11. MOBIC [Concomitant]
  12. ZOLOFT [Concomitant]
  13. PRILOSEC [Concomitant]
  14. TAXOTERE [Concomitant]
     Dates: start: 20060225, end: 20060607
  15. COUMADIN [Concomitant]
     Indication: PULMONARY EMBOLISM

REACTIONS (18)
  - FALL [None]
  - FISTULA [None]
  - FOOT FRACTURE [None]
  - GANGRENE [None]
  - HEAD INJURY [None]
  - LOWER LIMB FRACTURE [None]
  - LYMPH NODE PAIN [None]
  - ORAL SOFT TISSUE DISORDER [None]
  - OSTEOMYELITIS [None]
  - OSTEONECROSIS [None]
  - PAIN [None]
  - PERONEAL NERVE PALSY [None]
  - PURULENT DISCHARGE [None]
  - SUBARACHNOID HAEMORRHAGE [None]
  - SWELLING [None]
  - TOOTH ABSCESS [None]
  - TOOTH EXTRACTION [None]
  - WOUND DEBRIDEMENT [None]
